FAERS Safety Report 14496594 (Version 2)
Quarter: 2018Q1

REPORT INFORMATION
  Report Type: Spontaneous
  Country: US (occurrence: US)
  Receive Date: 20180207
  Receipt Date: 20180315
  Transmission Date: 20180509
  Serious: Yes (Other)
  Sender: FDA-Public Use
  Company Number: US-ROCHE-2063878

PATIENT
  Age: 36 Year
  Sex: Female
  Weight: 118.49 kg

DRUGS (2)
  1. OCREVUS [Suspect]
     Active Substance: OCRELIZUMAB
     Indication: RELAPSING-REMITTING MULTIPLE SCLEROSIS
     Dosage: UNKNOWN
     Route: 042
     Dates: start: 20180123
  2. SOLU-MEDROL [Concomitant]
     Active Substance: METHYLPREDNISOLONE SODIUM SUCCINATE
     Dosage: UNKNOWN?SHE DID HAVE AN INTOLERANCE TO HIGH DOSE METHYLPREDNISOLONE SODIUM SUCCINATE, SO THE REPORTE
     Route: 065

REACTIONS (6)
  - Gait disturbance [Unknown]
  - Infusion related reaction [Recovered/Resolved]
  - Secondary progressive multiple sclerosis [Unknown]
  - Palpitations [Unknown]
  - Dyspnoea [Unknown]
  - Drug intolerance [Unknown]

NARRATIVE: CASE EVENT DATE: 20180123
